FAERS Safety Report 17572824 (Version 8)
Quarter: 2021Q4

REPORT INFORMATION
  Report Type: Report from Study
  Country: US (occurrence: US)
  Receive Date: 20200323
  Receipt Date: 20211113
  Transmission Date: 20220303
  Serious: Yes (Other)
  Sender: FDA-Public Use
  Company Number: US-SHIRE-US202010642

PATIENT
  Age: 34 Year
  Sex: Male

DRUGS (1)
  1. ANTIHEMOPHILIC FACTOR HUMAN [Suspect]
     Active Substance: ANTIHEMOPHILIC FACTOR HUMAN
     Indication: Product used for unknown indication
     Dosage: 2000 INTERNATIONAL UNIT
     Route: 042

REACTIONS (1)
  - Haemarthrosis [Recovered/Resolved]

NARRATIVE: CASE EVENT DATE: 20200301
